FAERS Safety Report 26057095 (Version 2)
Quarter: 2025Q4

REPORT INFORMATION
  Report Type: Spontaneous
  Country: JP (occurrence: JP)
  Receive Date: 20251118
  Receipt Date: 20251212
  Transmission Date: 20260118
  Serious: Yes (Hospitalization)
  Sender: ROCHE
  Company Number: JP-CHUGAI-2025036485

PATIENT
  Age: 67 Year
  Sex: Female
  Weight: 54.9 kg

DRUGS (9)
  1. ROZLYTREK [Suspect]
     Active Substance: ENTRECTINIB
     Indication: Lung adenocarcinoma
     Dosage: UNK
     Route: 048
     Dates: start: 20250118, end: 20250123
  2. ROZLYTREK [Suspect]
     Active Substance: ENTRECTINIB
     Dosage: UNK
     Route: 048
     Dates: start: 20250124, end: 20250212
  3. ROZLYTREK [Suspect]
     Active Substance: ENTRECTINIB
     Dosage: UNK
     Route: 048
     Dates: start: 20250307, end: 20250313
  4. ROZLYTREK [Suspect]
     Active Substance: ENTRECTINIB
     Dosage: UNK
     Route: 048
     Dates: start: 20250314, end: 20250506
  5. PICIBANIL Injection Unknown [Concomitant]
     Indication: Pleural adhesion
     Dosage: 10KE
     Route: 038
     Dates: start: 20250222
  6. CARBAZOCHROME SODIUM SULFONATE [Concomitant]
     Active Substance: CARBAZOCHROME SODIUM SULFONATE
     Dates: start: 20241112, end: 20250303
  7. ATENOLOL [Concomitant]
     Active Substance: ATENOLOL
  8. EDOXABAN TOSYLATE [Concomitant]
     Active Substance: EDOXABAN TOSYLATE
     Dates: start: 202304, end: 20250212
  9. AUGTYRO [Concomitant]
     Active Substance: REPOTRECTINIB
     Indication: Lung adenocarcinoma

REACTIONS (1)
  - Chylothorax [Recovering/Resolving]

NARRATIVE: CASE EVENT DATE: 20250124
